FAERS Safety Report 5095252-1 (Version None)
Quarter: 2006Q3

REPORT INFORMATION
  Report Type: 
  Country: None (occurrence: None)
  Receive Date: 20060731
  Receipt Date: 20060418
  Transmission Date: 20061208
  Serious: No
  Sender: FDA-Public Use
  Company Number: 2006PV012249

PATIENT
  Age: 48 Year
  Sex: Female
  Weight: 129.2752 kg

DRUGS (9)
  1. BYETTA [Suspect]
     Indication: DIABETES MELLITUS NON-INSULIN-DEPENDENT
     Dosage: SEE IMAGE
     Route: 058
     Dates: start: 20060324, end: 20060424
  2. BYETTA [Suspect]
     Indication: DIABETES MELLITUS NON-INSULIN-DEPENDENT
     Dosage: SEE IMAGE
     Route: 058
     Dates: start: 20060425, end: 20060505
  3. AVANDIA [Suspect]
     Indication: DRUG USE FOR UNKNOWN INDICATION
     Dates: end: 20060101
  4. GLUCOPHAGE [Concomitant]
  5. ASPIRIN [Concomitant]
  6. MTFORMIN [Concomitant]
  7. CRESTOR [Concomitant]
  8. LOTREL [Concomitant]
  9. LEXIPRO [Concomitant]

REACTIONS (8)
  - ABDOMINAL PAIN [None]
  - ABNORMAL FAECES [None]
  - FAECAL VOLUME DECREASED [None]
  - INJECTION SITE BRUISING [None]
  - INJECTION SITE HAEMORRHAGE [None]
  - INJECTION SITE PAIN [None]
  - NAUSEA [None]
  - VOMITING [None]
